FAERS Safety Report 9524613 (Version 1)
Quarter: 2013Q3

REPORT INFORMATION
  Report Type: Report from Study
  Country: US (occurrence: US)
  Receive Date: 20130916
  Receipt Date: 20130916
  Transmission Date: 20140515
  Serious: Yes (Death)
  Sender: FDA-Public Use
  Company Number: PHEH2013US019262

PATIENT
  Sex: Male

DRUGS (2)
  1. TOBI [Suspect]
     Indication: CYSTIC FIBROSIS
     Dosage: 300 MG, BID (28 DAYS OF CYCLE  ON AND 28 OFF )
     Dates: start: 20110721
  2. PULMOZYME [Concomitant]
     Dosage: UNK

REACTIONS (1)
  - Death [Fatal]
